FAERS Safety Report 12203755 (Version 1)
Quarter: 2016Q1

REPORT INFORMATION
  Report Type: Report from Study
  Country: BR (occurrence: BR)
  Receive Date: 20160323
  Receipt Date: 20160323
  Transmission Date: 20160526
  Serious: Yes (Hospitalization)
  Sender: FDA-Public Use
  Company Number: PHHY2016BR038166

PATIENT
  Sex: Female
  Weight: 45 kg

DRUGS (1)
  1. EXELON PATCH [Suspect]
     Active Substance: RIVASTIGMINE
     Indication: AGITATION
     Dosage: UNK, QD
     Route: 062

REACTIONS (4)
  - Pneumonia aspiration [Recovered/Resolved]
  - Product use issue [Unknown]
  - Urinary tract infection [Unknown]
  - Drug ineffective for unapproved indication [Unknown]
